FAERS Safety Report 16060207 (Version 1)
Quarter: 2019Q2

REPORT INFORMATION
  Report Type: Spontaneous
  Country: US (occurrence: US)
  Receive Date: 20190312
  Receipt Date: 20190312
  Transmission Date: 20190711
  Serious: Yes (Life-Threatening, Other)
  Sender: FDA-Public Use
  Company Number: None

PATIENT
  Age: 26 Year
  Sex: Female
  Weight: 69.75 kg

DRUGS (4)
  1. PARAGARD T 380A [Concomitant]
     Active Substance: COPPER
  2. TYLENOL 500 MG PRN [Concomitant]
  3. VITAMIN B COMPLEX [Concomitant]
     Active Substance: CYANOCOBALAMIN\DEXPANTHENOL\NIACINAMIDE\PYRIDOXINE HYDROCHLORIDE\RIBOFLAVIN 5^-PHOSPHATE SODIUM\THIAMINE HYDROCHLORIDE\VITAMIN B COMPLEX
  4. TOPIRAMATE. [Suspect]
     Active Substance: TOPIRAMATE
     Indication: SEIZURE
     Dosage: ?          QUANTITY:2 TABLET(S);?
     Route: 048
     Dates: start: 20190301, end: 20190306

REACTIONS (6)
  - Hypertension [None]
  - Withdrawal syndrome [None]
  - Heart rate increased [None]
  - Amnesia [None]
  - Suicidal ideation [None]
  - Paralysis [None]

NARRATIVE: CASE EVENT DATE: 20190306
